FAERS Safety Report 7665528-X (Version None)
Quarter: 2011Q3

REPORT INFORMATION
  Report Type: 
  Country: None (occurrence: None)
  Receive Date: 20110806
  Receipt Date: 20110316
  Transmission Date: 20111222
  Serious: No
  Sender: FDA-Public Use
  Company Number: US-ABBOTT-11P-163-0711957-00

PATIENT
  Sex: Female
  Weight: 69.008 kg

DRUGS (8)
  1. LISINOPRIL [Concomitant]
     Indication: BLOOD PRESSURE
  2. EFFEXOR XR [Concomitant]
     Indication: DEPRESSION
  3. TRAMADOL HCL [Concomitant]
     Indication: ARTHRALGIA
  4. NIASPAN [Suspect]
     Indication: BLOOD CHOLESTEROL INCREASED
  5. ASPIRIN [Concomitant]
     Indication: PRODUCT USED FOR UNKNOWN INDICATION
  6. NIASPAN [Suspect]
     Indication: BLOOD TRIGLYCERIDES INCREASED
     Dates: start: 20101201
  7. XANAX [Concomitant]
     Indication: PRODUCT USED FOR UNKNOWN INDICATION
  8. CARDIZEM [Concomitant]
     Indication: ATRIAL FIBRILLATION

REACTIONS (3)
  - BLOOD TRIGLYCERIDES INCREASED [None]
  - HEPATIC ENZYME INCREASED [None]
  - BLOOD CHOLESTEROL INCREASED [None]
